FAERS Safety Report 17063941 (Version 1)
Quarter: 2019Q4

REPORT INFORMATION
  Report Type: Spontaneous
  Country: US (occurrence: US)
  Receive Date: 20191122
  Receipt Date: 20191122
  Transmission Date: 20200122
  Serious: No
  Sender: FDA-Public Use
  Company Number: US-JNJFOC-20191119824

PATIENT
  Sex: Female

DRUGS (2)
  1. INVEGA SUSTENNA [Suspect]
     Active Substance: PALIPERIDONE PALMITATE
     Indication: SCHIZOAFFECTIVE DISORDER
     Route: 030
  2. INVEGA SUSTENNA [Suspect]
     Active Substance: PALIPERIDONE PALMITATE
     Dosage: INTERVALS HAVE BEEN EXTENDED TO EVERY 5 WEEKS OR EVERY 6 WEEKS
     Route: 030

REACTIONS (3)
  - Off label use [Unknown]
  - Akathisia [Recovering/Resolving]
  - Inappropriate schedule of product administration [Unknown]
